FAERS Safety Report 16194983 (Version 3)
Quarter: 2019Q2

REPORT INFORMATION
  Report Type: Spontaneous
  Country: ES (occurrence: ES)
  Receive Date: 20190415
  Receipt Date: 20190614
  Transmission Date: 20190711
  Serious: Yes (Death, Life-Threatening, Hospitalization, Other)
  Sender: FDA-Public Use
  Company Number: ES-BRISTOL-MYERS SQUIBB COMPANY-BMS-2019-035591

PATIENT
  Age: 73 Year
  Sex: Male

DRUGS (1)
  1. OPDIVO [Suspect]
     Active Substance: NIVOLUMAB
     Indication: LUNG NEOPLASM MALIGNANT
     Dosage: 3 MILLIGRAM/KILOGRAM, Q2WK
     Route: 042
     Dates: start: 20180711, end: 20181227

REACTIONS (4)
  - Multiple organ dysfunction syndrome [Fatal]
  - Gastric mucosa erythema [Unknown]
  - Necrotising oesophagitis [Fatal]
  - Large intestinal ulcer [Unknown]

NARRATIVE: CASE EVENT DATE: 20190414
